FAERS Safety Report 10686237 (Version 4)
Quarter: 2015Q2

REPORT INFORMATION
  Report Type: Spontaneous
  Country: US (occurrence: US)
  Receive Date: 20141231
  Receipt Date: 20150507
  Transmission Date: 20150821
  Serious: No
  Sender: FDA-Public Use
  Company Number: US-GLAXOSMITHKLINE-US2014GSK044634

PATIENT
  Age: 44 Year
  Sex: Male

DRUGS (13)
  1. VOTRIENT [Suspect]
     Active Substance: PAZOPANIB HYDROCHLORIDE
     Indication: RENAL CANCER
     Dosage: 800 MG, UNK
     Route: 065
     Dates: start: 20140903
  2. PENICILLIN VK [Concomitant]
     Active Substance: PENICILLIN V POTASSIUM
  3. ATENOLOL. [Concomitant]
     Active Substance: ATENOLOL
  4. ATIVAN [Concomitant]
     Active Substance: LORAZEPAM
  5. VOTRIENT [Suspect]
     Active Substance: PAZOPANIB HYDROCHLORIDE
     Indication: URETERAL DISORDER
     Dosage: UNK
  6. ALEVE [Concomitant]
     Active Substance: NAPROXEN SODIUM
  7. FLUTICASONE NASAL SPRAY [Concomitant]
     Active Substance: FLUTICASONE\FLUTICASONE PROPIONATE
  8. VOTRIENT [Suspect]
     Active Substance: PAZOPANIB HYDROCHLORIDE
     Indication: URETERIC CANCER
  9. LORAZEPAM. [Concomitant]
     Active Substance: LORAZEPAM
  10. VOTRIENT [Suspect]
     Active Substance: PAZOPANIB HYDROCHLORIDE
     Indication: RENAL DISORDER
     Dosage: 200 MG, U
     Route: 065
     Dates: start: 20140903
  11. AMBIEN [Concomitant]
     Active Substance: ZOLPIDEM TARTRATE
  12. DOCUSATE SODIUM. [Concomitant]
     Active Substance: DOCUSATE SODIUM
  13. MS CONTIN [Concomitant]
     Active Substance: MORPHINE SULFATE

REACTIONS (4)
  - Nausea [Unknown]
  - Hair colour changes [Unknown]
  - Fatigue [Not Recovered/Not Resolved]
  - Gastrointestinal disorder [Unknown]

NARRATIVE: CASE EVENT DATE: 201412
